FAERS Safety Report 13180240 (Version 3)
Quarter: 2017Q3

REPORT INFORMATION
  Report Type: Report from Study
  Country: JP (occurrence: JP)
  Receive Date: 20170202
  Receipt Date: 20170815
  Transmission Date: 20171127
  Serious: Yes (Hospitalization)
  Sender: FDA-Public Use
  Company Number: JP-ACTELION-A-CH2017-149111

PATIENT
  Age: 27 Year
  Sex: Male

DRUGS (17)
  1. REBAMIPIDE [Suspect]
     Active Substance: REBAMIPIDE
     Indication: ABDOMINAL DISCOMFORT
     Dosage: 100 MG, QD
     Route: 048
     Dates: start: 20150528, end: 20150604
  2. EBRANTIL [Concomitant]
     Active Substance: URAPIDIL
  3. EPOPROSTENOL ACT [Suspect]
     Active Substance: EPOPROSTENOL
     Dosage: 0.52 NG/KG, UNK
     Route: 042
     Dates: start: 20150503
  4. EPOPROSTENOL ACT [Suspect]
     Active Substance: EPOPROSTENOL
     Dosage: 7.41 NG/KG, UNK
     Route: 042
     Dates: start: 20150513
  5. EPOPROSTENOL ACT [Suspect]
     Active Substance: EPOPROSTENOL
     Dosage: 27 NG/KG, UNK
     Route: 042
     Dates: start: 20150610
  6. GASTER [Suspect]
     Active Substance: FAMOTIDINE
     Indication: ABDOMINAL DISCOMFORT
     Dosage: UNK
     Route: 048
     Dates: start: 20150516, end: 20150527
  7. OXYGEN. [Concomitant]
     Active Substance: OXYGEN
  8. EPOPROSTENOL ACT [Suspect]
     Active Substance: EPOPROSTENOL
     Dosage: 11.11 NG/KG, UNK
     Route: 042
     Dates: start: 20150521
  9. TRACLEER [Suspect]
     Active Substance: BOSENTAN
     Indication: PULMONARY ARTERIAL HYPERTENSION
     Dosage: 250 MG, QD
     Route: 048
     Dates: start: 20150418, end: 20150617
  10. EPOPROSTENOL ACT [Suspect]
     Active Substance: EPOPROSTENOL
     Indication: PULMONARY ARTERIAL HYPERTENSION
     Dosage: 0.26 NG/KG, PER MIN
     Route: 042
     Dates: start: 20150501
  11. EPOPROSTENOL ACT [Suspect]
     Active Substance: EPOPROSTENOL
     Dosage: 21.43 NG/KG, PER MIN
     Route: 042
     Dates: start: 20150601
  12. EPOPROSTENOL ACT [Suspect]
     Active Substance: EPOPROSTENOL
     Dosage: 30.5 NG/KG, PER MIN
     Route: 042
     Dates: start: 20150629
  13. EPOPROSTENOL ACT [Suspect]
     Active Substance: EPOPROSTENOL
     Dosage: 0.79 NG/KG, UNK
     Route: 042
     Dates: start: 20150505
  14. EPOPROSTENOL ACT [Suspect]
     Active Substance: EPOPROSTENOL
     Dosage: 6.35 NG/KG, UNK
     Route: 042
     Dates: start: 20150512
  15. EPOPROSTENOL ACT [Suspect]
     Active Substance: EPOPROSTENOL
     Dosage: 13.76 NG/KG, UNK
     Route: 042
     Dates: start: 20150525
  16. ADEMPAS [Suspect]
     Active Substance: RIOCIGUAT
     Indication: PULMONARY ARTERIAL HYPERTENSION
     Dosage: 7.5 MG, QD
     Route: 048
     Dates: start: 20150417
  17. OPSUMIT [Concomitant]
     Active Substance: MACITENTAN
     Indication: PULMONARY ARTERIAL HYPERTENSION
     Dosage: 10 MG, UNK
     Route: 048

REACTIONS (17)
  - Catheter site infection [Recovered/Resolved]
  - Catheter site erythema [Recovered/Resolved]
  - Catheter site warmth [Recovering/Resolving]
  - Headache [Recovering/Resolving]
  - Nausea [Recovered/Resolved]
  - Hepatic function abnormal [Recovering/Resolving]
  - Aspartate aminotransferase increased [Recovered/Resolved]
  - Acne [Recovered/Resolved]
  - Hyperthyroidism [Recovered/Resolved]
  - Alanine aminotransferase increased [Recovered/Resolved]
  - Pain in jaw [Recovered/Resolved]
  - Tooth extraction [Recovered/Resolved]
  - Blood pressure decreased [Recovered/Resolved]
  - Device related infection [Recovered/Resolved]
  - Catheter site granuloma [Recovering/Resolving]
  - Catheter site pain [Recovered/Resolved]
  - Faeces soft [Recovered/Resolved]

NARRATIVE: CASE EVENT DATE: 20150503
